FAERS Safety Report 6918569-1 (Version None)
Quarter: 2010Q3

REPORT INFORMATION
  Report Type: 
  Country: None (occurrence: None)
  Receive Date: 20100811
  Receipt Date: 20100728
  Transmission Date: 20110219
  Serious: No
  Sender: FDA-Public Use
  Company Number: US-TEVA-243972USA

PATIENT
  Sex: Female
  Weight: 59.02 kg

DRUGS (4)
  1. ALBUTEROL SULFATE AUTOHALER [Suspect]
     Route: 055
     Dates: start: 20100726, end: 20100726
  2. OMEPRAZOLE [Concomitant]
  3. SERETIDE [Concomitant]
  4. VERAMYST [Concomitant]

REACTIONS (4)
  - HYPERTENSION [None]
  - ORAL DISCOMFORT [None]
  - RETCHING [None]
  - THROAT IRRITATION [None]
